FAERS Safety Report 8525507-7 (Version None)
Quarter: 2012Q3

REPORT INFORMATION
  Report Type: 
  Country: None (occurrence: None)
  Receive Date: 20120720
  Receipt Date: 20120711
  Transmission Date: 20120928
  Serious: Yes (Other)
  Sender: FDA-Public Use
  Company Number: CN-BRISTOL-MYERS SQUIBB COMPANY-16762817

PATIENT
  Sex: Female

DRUGS (1)
  1. BARACLUDE [Suspect]
     Dosage: SEVERAL YEARS.
     Route: 048

REACTIONS (1)
  - BREAST CANCER [None]
